FAERS Safety Report 14655535 (Version 1)
Quarter: 2018Q1

REPORT INFORMATION
  Report Type: Spontaneous
  Country: DE (occurrence: DE)
  Receive Date: 20180319
  Receipt Date: 20180319
  Transmission Date: 20180509
  Serious: Yes (Other)
  Sender: FDA-Public Use
  Company Number: DE-CELGENEUS-DEU-20180301108

PATIENT
  Age: 53 Year
  Sex: Male
  Weight: 80 kg

DRUGS (1)
  1. OTEZLA [Suspect]
     Active Substance: APREMILAST
     Indication: PSORIASIS
     Dosage: 30 MILLIGRAM
     Route: 048
     Dates: start: 201705, end: 201708

REACTIONS (4)
  - Anxiety [Recovering/Resolving]
  - Diverticulitis [Recovering/Resolving]
  - Diverticulum [Recovering/Resolving]
  - Illusion [Recovering/Resolving]

NARRATIVE: CASE EVENT DATE: 201705
